FAERS Safety Report 6925540-2 (Version None)
Quarter: 2010Q3

REPORT INFORMATION
  Report Type: 
  Country: None (occurrence: None)
  Receive Date: 20100816
  Receipt Date: 20100809
  Transmission Date: 20110219
  Serious: Yes (Hospitalization)
  Sender: FDA-Public Use
  Company Number: CO-ROCHE-719992

PATIENT
  Sex: Female

DRUGS (2)
  1. AVASTIN [Suspect]
     Indication: BREAST CANCER
     Dosage: LAST INFUSION WAS 26 MAY 2010, FORM: INFUSION
     Route: 042
     Dates: start: 20090126
  2. TRAMADOL [Concomitant]
     Indication: PAIN
     Dosage: DOSE: DROPS, ROUTE: PO, FREQ: PRN
     Route: 048

REACTIONS (1)
  - ASCITES [None]
